FAERS Safety Report 17715357 (Version 3)
Quarter: 2022Q1

REPORT INFORMATION
  Report Type: Spontaneous
  Country: GB (occurrence: GB)
  Receive Date: 20200427
  Receipt Date: 20220326
  Transmission Date: 20220423
  Serious: Yes (Life-Threatening, Hospitalization, Other)
  Sender: FDA-Public Use
  Company Number: None

PATIENT
  Age: 69 Year
  Sex: Female

DRUGS (63)
  1. PACLITAXEL [Suspect]
     Active Substance: PACLITAXEL
     Indication: Product used for unknown indication
     Dosage: 138 MG, Q4W (MONTHLY, EVERY 4 WEEKS (CUMULATIVE)
     Route: 042
     Dates: start: 20151203, end: 20160203
  2. PACLITAXEL [Suspect]
     Active Substance: PACLITAXEL
     Dosage: 139 MG, Q4W
     Route: 042
     Dates: start: 20151210
  3. PACLITAXEL [Suspect]
     Active Substance: PACLITAXEL
     Dosage: 102 MG, Q4W ((CUMULATIVED DOSE: 229.5 MG)
     Route: 042
     Dates: start: 20160204, end: 20160218
  4. PACLITAXEL [Suspect]
     Active Substance: PACLITAXEL
     Dosage: 120 MG, Q4W (MONTHLY, EVERY 4 WEEKS (34.75 MG CD,)884 MG, 4.92857142 MG; CUMULATIVE
     Route: 042
     Dates: start: 20160204, end: 20160218
  5. PACLITAXEL [Suspect]
     Active Substance: PACLITAXEL
     Dosage: 120 MG, Q4W MONTHLY, EVERY 4 WEEKS (CUMULATIVE DOSE: 236.78572 MG)
     Route: 042
     Dates: start: 20160204, end: 20160218
  6. PACLITAXEL [Suspect]
     Active Substance: PACLITAXEL
     Dosage: 120 MG, Q4W (CUMULATIVED DOSE: 229.5 MG)
     Route: 042
     Dates: start: 20160204, end: 20160218
  7. PACLITAXEL [Suspect]
     Active Substance: PACLITAXEL
     Dosage: 120 MG, Q4W 120 MILLIGRAM, 34.75 MG CD, 884 MG, 4.92857142 MG
     Route: 042
     Dates: start: 20160204, end: 20160218
  8. PACLITAXEL [Suspect]
     Active Substance: PACLITAXEL
     Dosage: 120 MG, Q4W MONTHLY, EVERY 4 WEEKS (CUMULATIVE DOSE: 44.67857 MG)
     Route: 042
     Dates: start: 20151210
  9. PACLITAXEL [Suspect]
     Active Substance: PACLITAXEL
     Dosage: 68 MG, QW ((DATE OF LAST ADMINISTERED DOSE: 10-MAR-2)
     Route: 042
     Dates: start: 20160303, end: 20160310
  10. PACLITAXEL [Suspect]
     Active Substance: PACLITAXEL
     Dosage: 68 MG, QW 68 MG, EVERY 1 WEEKS (DATE OF LAST ADMINISTER
     Route: 042
     Dates: start: 20160303, end: 20160310
  11. DOCETAXEL [Suspect]
     Active Substance: DOCETAXEL
     Indication: Breast cancer metastatic
     Dosage: 124 MG, TIW
     Route: 042
     Dates: start: 20151106, end: 20151106
  12. DOCETAXEL [Suspect]
     Active Substance: DOCETAXEL
     Dosage: 124 MG, TIW (CUMULATIVE DOSE: 159.42857 MG)
     Route: 042
     Dates: start: 20151106, end: 20151106
  13. PERTUZUMAB [Suspect]
     Active Substance: PERTUZUMAB
     Indication: Breast cancer metastatic
     Dosage: 840 MG, ONCE/SINGLE (LOADING DOSE, INFUSION, SOLUTION; DOSE FORM: 230)
     Route: 042
     Dates: start: 20151105
  14. PERTUZUMAB [Suspect]
     Active Substance: PERTUZUMAB
     Dosage: 840 MG, ONCE/SINGLE (LOADING DOSE, INFUSION, SOLUTION; DOSE FORM: 23)
     Route: 042
     Dates: start: 20151105
  15. PERTUZUMAB [Suspect]
     Active Substance: PERTUZUMAB
     Dosage: 420 MG, TIW MAINTENANCE DOSE, DF FORM: 230; CUMULATIVE DOSE; 40.0 MG)
     Route: 042
     Dates: start: 20151203
  16. TRASTUZUMAB [Suspect]
     Active Substance: TRASTUZUMAB
     Indication: Breast cancer metastatic
     Dosage: 450 MG, Q3W (LOADING DOSE; DOSE FORM: 293)
     Route: 042
     Dates: start: 20151105
  17. TRASTUZUMAB [Suspect]
     Active Substance: TRASTUZUMAB
     Dosage: 450 MG, QD1 TOTAL (LOADING DOSE) DOSE FORM:230; DOSGE FORM: INFUSION, SOLUTION
     Route: 042
     Dates: start: 20151105, end: 20151105
  18. TRASTUZUMAB [Suspect]
     Active Substance: TRASTUZUMAB
     Dosage: 350 MG, Q3W (MAINTENANCE DOSE; DOSE FORM: 230; CUMULATIVE DOSE: 33.333332 MG)
     Route: 042
     Dates: start: 20151203, end: 20180327
  19. TRASTUZUMAB [Suspect]
     Active Substance: TRASTUZUMAB
     Dosage: 336 MG, Q3W (MAINTENANCE DOSE; DOSE FORM: 230; CUMULATIVE DOSE: 33.333332 MG)
     Route: 042
     Dates: start: 20180518, end: 20190327
  20. TRASTUZUMAB [Suspect]
     Active Substance: TRASTUZUMAB
     Dosage: 336 MG, Q3W DOSE FORM: 230, (CUMULATIVE DOSE TO FIRST REACTION:14383.333MG
     Route: 042
     Dates: start: 20180518, end: 20190327
  21. HERCEPTIN [Suspect]
     Active Substance: TRASTUZUMAB
     Indication: Breast cancer metastatic
     Dosage: 450 MG, ONCE/SINGLE (LOADING DOSE)
     Route: 042
     Dates: start: 20151105, end: 20151105
  22. HERCEPTIN [Suspect]
     Active Substance: TRASTUZUMAB
     Dosage: 350 MG, TIW MAINTENANCE DOSE (DATE AND TIME OF LAST ADMINISTRATION 27 APR 2018)
     Route: 042
     Dates: start: 20151203
  23. HERCEPTIN [Suspect]
     Active Substance: TRASTUZUMAB
     Dosage: 336 MG, TIW (DATE AND TIME OF LAST ADMINISTRATION 27 APR 2019)
     Route: 042
     Dates: start: 20180518
  24. PACLITAXEL [Suspect]
     Active Substance: PACLITAXEL
     Indication: Product used for unknown indication
     Dosage: 138 MG, Q4W (CUMULATIVE DOSE: 229.5MG)
     Route: 042
     Dates: start: 20151203
  25. PACLITAXEL [Suspect]
     Active Substance: PACLITAXEL
     Dosage: 138 MG, Q4W (CUMULATIVE DOSE: 229.5MG)
     Route: 042
     Dates: start: 20151203, end: 20161203
  26. PACLITAXEL [Suspect]
     Active Substance: PACLITAXEL
     Dosage: 138 MG, Q4W (CUMULATIVE DOSE: 229.5MG)
     Route: 042
     Dates: start: 20151210
  27. PACLITAXEL [Suspect]
     Active Substance: PACLITAXEL
     Dosage: 102 MG, Q4W (EVERY 4 WEEKS (CUMULATIVE DOSE: 236.78572 MG))
     Route: 042
     Dates: start: 20160204, end: 20160218
  28. PACLITAXEL [Suspect]
     Active Substance: PACLITAXEL
     Dosage: 120 MG, Q4W ((34.75 MG CD, 884 MG, 4.92857142 MG; CD: 229.5 MG)
     Route: 042
     Dates: start: 20160204
  29. PACLITAXEL [Suspect]
     Active Substance: PACLITAXEL
     Dosage: 68 MG, QW ((DATE OF LAST ADMINISTERED DOSE: 10-MAR-2016; CUMULATIVE DOSE: 229.5 MG)
     Route: 042
     Dates: start: 20160303
  30. RANITIDINE [Concomitant]
     Active Substance: RANITIDINE
     Indication: Prophylaxis
     Dosage: 150 MG, BID FOR 3 DAYS (1 TABLET TWICE A DAY FOR 3 DAYS )
     Route: 048
     Dates: start: 20151203
  31. ATORVASTATIN [Concomitant]
     Active Substance: ATORVASTATIN
     Indication: Product used for unknown indication
     Dosage: 40 MG, QD DOSE FORM: 245)(CUMD TO FIRST REA)
     Route: 048
     Dates: start: 20170701
  32. ATORVASTATIN [Concomitant]
     Active Substance: ATORVASTATIN
     Dosage: 40 MG, QD 40 MILLIGRAM, QD (40 MG, 1X/DAY)
     Route: 048
     Dates: start: 20170701
  33. ATORVASTATIN [Concomitant]
     Active Substance: ATORVASTATIN
     Dosage: 350 MG, Q3W (MAINTENANCE; CUM DOSE: 33.333332 MG)
     Route: 048
  34. METOCLOPRAMIDE [Concomitant]
     Active Substance: METOCLOPRAMIDE
     Indication: Prophylaxis of nausea and vomiting
     Dosage: 10 MG
     Route: 048
     Dates: start: 20151203
  35. LOPERAMIDE [Concomitant]
     Active Substance: LOPERAMIDE
     Indication: Prophylaxis against diarrhoea
     Dosage: 4 DF, BID FOR 3 DAYS
     Route: 048
     Dates: start: 20151203
  36. LOPERAMIDE [Concomitant]
     Active Substance: LOPERAMIDE
     Dosage: 2 MG, BID 2 MILLIGRAM, (4 TABLET TWICE A DAY FOR 3 DAYS)
     Route: 048
     Dates: start: 20151203
  37. CLOPIDOGREL [Concomitant]
     Active Substance: CLOPIDOGREL BISULFATE
     Indication: Product used for unknown indication
     Dosage: UNK
     Route: 048
     Dates: start: 20170701
  38. CETIRIZINE [Concomitant]
     Active Substance: CETIRIZINE HYDROCHLORIDE
     Indication: Antiviral prophylaxis
     Dosage: 10 MG, QN (1 TABLET AT NIGHT FOR 3 DAYS)
     Route: 048
     Dates: start: 20151203
  39. CETIRIZINE [Concomitant]
     Active Substance: CETIRIZINE HYDROCHLORIDE
     Dosage: 10 MG, QN (1 TABLET AT NIGHT FOR 3 DAYS)
     Route: 048
     Dates: start: 20151203
  40. RAMIPRIL [Concomitant]
     Active Substance: RAMIPRIL
     Indication: Product used for unknown indication
     Dosage: 2.5 MG, QD (1.25 MG, 2X/DAY)
     Route: 048
     Dates: start: 20170523
  41. RAMIPRIL [Concomitant]
     Active Substance: RAMIPRIL
     Dosage: 2.5 MG, QD (CUM DOSE TO FIRST REACTION 1347.3959 MG)
     Route: 048
     Dates: start: 20170523
  42. RAMIPRIL [Concomitant]
     Active Substance: RAMIPRIL
     Dosage: 1.25 MG
     Route: 048
     Dates: start: 20170523
  43. RAMIPRIL [Concomitant]
     Active Substance: RAMIPRIL
     Dosage: 1.25 MG 1.25 MILLIGRAM,1.25 MG, EVERY 1 DAY (START 23-MAY-2017)
     Route: 048
     Dates: start: 20170523
  44. RAMIPRIL [Concomitant]
     Active Substance: RAMIPRIL
     Dosage: 2.5 MG 2.5 MILLIGRAM QD, START 23-MAY-2017
     Route: 048
  45. RAMIPRIL [Concomitant]
     Active Substance: RAMIPRIL
     Dosage: 1.25 MG 1.25 MILLIGRAM, (1.25 MG, EVERY 0.5 DAY)
     Route: 048
     Dates: start: 20170523
  46. LANSOPRAZOLE [Concomitant]
     Active Substance: LANSOPRAZOLE
     Indication: Product used for unknown indication
     Dosage: 30 MG, QD
     Route: 048
     Dates: start: 20170312
  47. LANSOPRAZOLE [Concomitant]
     Active Substance: LANSOPRAZOLE
     Dosage: 30 MG, QD (START 12-MAR-2017)(CUM DOSE : 14010.0 MG)
     Route: 048
     Dates: start: 20170312
  48. LANSOPRAZOLE [Concomitant]
     Active Substance: LANSOPRAZOLE
     Dosage: 30 MG, QD 30 MILLIGRAM, QD, (30 MG, 1X/DAY)
     Route: 048
     Dates: start: 20170312
  49. TRAMADOL HYDROCHLORIDE [Concomitant]
     Active Substance: TRAMADOL HYDROCHLORIDE
     Indication: Prophylaxis
     Dosage: 50 MG
     Route: 048
     Dates: start: 20151105
  50. ASPIRIN [Concomitant]
     Active Substance: ASPIRIN
     Indication: Product used for unknown indication
     Dosage: 75 MG, QD
     Route: 048
     Dates: start: 20170523, end: 20170701
  51. ASPIRIN [Concomitant]
     Active Substance: ASPIRIN
     Dosage: 75 MG, QD
     Route: 065
     Dates: start: 20170523, end: 20170701
  52. ASPIRIN [Concomitant]
     Active Substance: ASPIRIN
     Dosage: 75 MG, QD 75 MILLIGRAM, (75 MG, 1X/DAY)
     Route: 065
     Dates: start: 20170523, end: 20170701
  53. ASPIRIN [Concomitant]
     Active Substance: ASPIRIN
     Dosage: 75 MG, QD 75 MILLIGRAM, QD, (CUM DOSE : 40421)
     Route: 065
     Dates: start: 20170523, end: 20170701
  54. DEXAMETHASONE [Concomitant]
     Active Substance: DEXAMETHASONE
     Indication: Prophylaxis
     Dosage: 8 MG
     Route: 048
     Dates: start: 20151105
  55. DEXAMETHASONE [Concomitant]
     Active Substance: DEXAMETHASONE
     Dosage: 8 MG
     Route: 048
     Dates: start: 20151105
  56. CHLORHEXIDINE GLUCONATE [Concomitant]
     Active Substance: CHLORHEXIDINE GLUCONATE
     Indication: Prophylaxis
     Dosage: 4 UNK, QD (MOUTHWASH) START 05-NOV-2015
     Route: 048
     Dates: start: 20151105
  57. CHLORHEXIDINE GLUCONATE [Concomitant]
     Active Substance: CHLORHEXIDINE GLUCONATE
     Dosage: UNK UNK, (EVERY 0.25 DAY (MOUTHWASH))
     Route: 048
     Dates: start: 20151105
  58. CHLORHEXIDINE GLUCONATE [Concomitant]
     Active Substance: CHLORHEXIDINE GLUCONATE
     Dosage: 4 UNK, QD (MOUTHWASH) START 05-NOV-2015
     Route: 048
     Dates: start: 20151105
  59. CHLORHEXIDINE GLUCONATE [Concomitant]
     Active Substance: CHLORHEXIDINE GLUCONATE
     Dosage: UNK, (4 EVERY 1 DAY (MOUTHWASH))
     Route: 048
     Dates: start: 20151105
  60. CHLORHEXIDINE GLUCONATE [Concomitant]
     Active Substance: CHLORHEXIDINE GLUCONATE
     Dosage: UNK UNK, (4(NO UNIT REPORTED) EVERY 1 DAY (MOUTHWASH))
     Route: 065
     Dates: start: 20151105
  61. LORATADINE [Concomitant]
     Active Substance: LORATADINE
     Indication: Product used for unknown indication
     Dosage: UNK
     Route: 048
     Dates: start: 20151119, end: 20151217
  62. ROSUVASTATIN [Concomitant]
     Active Substance: ROSUVASTATIN
     Indication: Product used for unknown indication
     Dosage: 5 MG
     Route: 048
     Dates: start: 201806, end: 201911
  63. EZETIMIBE [Concomitant]
     Active Substance: EZETIMIBE
     Indication: Product used for unknown indication
     Dosage: UNK
     Route: 048
     Dates: start: 2019

REACTIONS (23)
  - Anaphylactic reaction [Recovered/Resolved]
  - Tremor [Recovered/Resolved]
  - Cystitis noninfective [Recovered/Resolved]
  - Tendonitis [Not Recovered/Not Resolved]
  - Defaecation urgency [Recovered/Resolved]
  - Urosepsis [Recovered/Resolved]
  - Urinary tract infection [Recovered/Resolved]
  - Neuropathy peripheral [Recovered/Resolved]
  - Neuropathy peripheral [Recovered/Resolved]
  - Escherichia test positive [Not Recovered/Not Resolved]
  - Hypertension [Recovered/Resolved]
  - Palmar erythema [Recovered/Resolved]
  - Hypersensitivity [Recovered/Resolved]
  - Diarrhoea [Recovered/Resolved]
  - Malaise [Recovered/Resolved]
  - Mucosal inflammation [Recovered/Resolved]
  - Fatigue [Recovered/Resolved]
  - Rash [Recovered/Resolved]
  - Dyspnoea [Recovered/Resolved]
  - Erythema [Recovered/Resolved]
  - Bacterial test positive [Recovered/Resolved]
  - Dysuria [Recovered/Resolved]
  - Chest discomfort [Recovered/Resolved]

NARRATIVE: CASE EVENT DATE: 20151201
